FAERS Safety Report 21396052 (Version 1)
Quarter: 2022Q3

REPORT INFORMATION
  Report Type: Spontaneous
  Country: US (occurrence: None)
  Receive Date: 20220928
  Receipt Date: 20220928
  Transmission Date: 20221026
  Serious: No
  Sender: FDA-Public Use
  Company Number: None

PATIENT
  Sex: Female

DRUGS (1)
  1. TALTZ [Suspect]
     Active Substance: IXEKIZUMAB
     Indication: Psoriasis
     Dosage: 80MG EVERY MONTH SUBCUTANEOUS
     Route: 058
     Dates: start: 20220905

REACTIONS (3)
  - Needle issue [None]
  - Drug dose omission by device [None]
  - Device malfunction [None]
